FAERS Safety Report 13463668 (Version 2)
Quarter: 2018Q2

REPORT INFORMATION
  Report Type: Spontaneous
  Country: TR (occurrence: TR)
  Receive Date: 20170420
  Receipt Date: 20180622
  Transmission Date: 20180711
  Serious: Yes (Life-Threatening, Other)
  Sender: FDA-Public Use
  Company Number: TR-BAUSCH-BL-2017-010395

PATIENT
  Age: 49 Year
  Sex: Male

DRUGS (12)
  1. DELTACORTRIL [Concomitant]
     Active Substance: PREDNISOLONE
     Indication: RHEUMATOID ARTHRITIS
     Dates: start: 2008
  2. CARBOPLATIN. [Suspect]
     Active Substance: CARBOPLATIN
     Indication: PERIPHERAL T-CELL LYMPHOMA UNSPECIFIED
     Dosage: 2 COURSES OF ICE REGIMEN; CYCLICAL
     Route: 065
  3. IFOSFAMIDE. [Suspect]
     Active Substance: IFOSFAMIDE
     Indication: PERIPHERAL T-CELL LYMPHOMA UNSPECIFIED
     Dosage: 2 COURSES OF ICE REGIMEN; CYCLICAL
     Route: 065
  4. GRANULOCYTE COLONY STIMULATING FACTOR [Concomitant]
     Active Substance: GRANULOCYTE COLONY-STIMULATING FACTOR NOS
     Indication: PERIPHERAL T-CELL LYMPHOMA UNSPECIFIED
  5. PREDNISOLONE. [Suspect]
     Active Substance: PREDNISOLONE
     Indication: PERIPHERAL T-CELL LYMPHOMA UNSPECIFIED
     Dosage: THREE TIMES AT TWO-WEEK INTERVALS; CYCLICAL
     Route: 065
     Dates: start: 2008
  6. ETOPOSIDE. [Suspect]
     Active Substance: ETOPOSIDE
     Indication: PERIPHERAL T-CELL LYMPHOMA UNSPECIFIED
     Dosage: 2 COURSES OF ICE REGIMEN; CYCLICAL
     Route: 065
     Dates: start: 2008
  7. CYCLOPHOSPHAMIDE. [Suspect]
     Active Substance: CYCLOPHOSPHAMIDE
     Indication: PERIPHERAL T-CELL LYMPHOMA UNSPECIFIED
     Dosage: THREE TIMES AT TWO-WEEK INTERVALS; CYCLICAL
     Route: 065
     Dates: start: 2008
  8. METHOTREXATE. [Concomitant]
     Active Substance: METHOTREXATE
     Indication: RHEUMATOID ARTHRITIS
     Dosage: WEEKLY
     Dates: start: 2008
  9. DOXORUBICIN [Suspect]
     Active Substance: DOXORUBICIN
     Indication: PERIPHERAL T-CELL LYMPHOMA UNSPECIFIED
  10. DICLOFENAC [Concomitant]
     Active Substance: DICLOFENAC
     Indication: RHEUMATOID ARTHRITIS
     Dates: start: 2008
  11. VINCRISTINE [Suspect]
     Active Substance: VINCRISTINE
     Indication: PERIPHERAL T-CELL LYMPHOMA UNSPECIFIED
     Dosage: THREE TIMES AT TWO-WEEK INTERVALS; CYCLICAL
     Route: 065
     Dates: start: 2008
  12. DOXORUBICIN [Suspect]
     Active Substance: DOXORUBICIN
     Indication: T-CELL LYMPHOMA
     Dosage: THREE TIMES AT TWO-WEEK INTERVALS; CYCLICAL
     Route: 065
     Dates: start: 2008

REACTIONS (1)
  - Drug ineffective [Unknown]
